FAERS Safety Report 7971190 (Version 9)
Quarter: 2014Q1

REPORT INFORMATION
  Report Type: Report from Study
  Country: CA (occurrence: CA)
  Receive Date: 20110602
  Receipt Date: 20140224
  Transmission Date: 20141002
  Serious: Yes (Hospitalization, Other)
  Sender: FDA-Public Use
  Company Number: PHHY2011CA43593

PATIENT
  Age: 78 Year
  Sex: Female

DRUGS (3)
  1. ACLASTA [Suspect]
     Indication: OSTEOPOROSIS
     Dosage: 5 MG, UNK
     Route: 042
     Dates: start: 20100514
  2. ACLASTA [Suspect]
     Dosage: 5 MG, UNK
     Route: 042
     Dates: start: 20111111
  3. METHOTREXATE [Concomitant]
     Dosage: UNK UKN, UNK

REACTIONS (14)
  - Pancytopenia [Recovering/Resolving]
  - Pyrexia [Unknown]
  - Pain [Not Recovered/Not Resolved]
  - Bronchitis [Unknown]
  - Cough [Unknown]
  - Fracture [Unknown]
  - Osteoporotic fracture [Unknown]
  - Spinal fracture [Unknown]
  - Chromaturia [Unknown]
  - Gait disturbance [Unknown]
  - Renal pain [Unknown]
  - Urinary tract infection [Unknown]
  - Back pain [Unknown]
  - Malaise [Unknown]
